FAERS Safety Report 20672884 (Version 1)
Quarter: 2022Q2

REPORT INFORMATION
  Report Type: Spontaneous
  Country: MY (occurrence: None)
  Receive Date: 20220405
  Receipt Date: 20220405
  Transmission Date: 20220720
  Serious: Yes (Other)
  Sender: FDA-Public Use
  Company Number: MY-ROCHE-3061416

PATIENT
  Age: 38 Year
  Sex: Female
  Weight: 51.1 kg

DRUGS (1)
  1. PERJETA [Suspect]
     Active Substance: PERTUZUMAB
     Indication: Breast cancer
     Route: 042
     Dates: start: 20211025, end: 20211115

REACTIONS (4)
  - Hot flush [Recovered/Resolved]
  - Pruritus [Unknown]
  - Chest discomfort [Unknown]
  - Abdominal pain upper [Unknown]

NARRATIVE: CASE EVENT DATE: 20211115
